APPROVED DRUG PRODUCT: RANITIDINE HYDROCHLORIDE
Active Ingredient: RANITIDINE HYDROCHLORIDE
Strength: EQ 150MG BASE
Dosage Form/Route: CAPSULE;ORAL
Application: A075742 | Product #001 | TE Code: AB
Applicant: DR REDDYS LABORATORIES LTD
Approved: Nov 29, 2000 | RLD: No | RS: No | Type: RX